FAERS Safety Report 9861105 (Version 2)
Quarter: 2014Q1

REPORT INFORMATION
  Report Type: Spontaneous
  Country: NZ (occurrence: NZ)
  Receive Date: 20140202
  Receipt Date: 20140202
  Transmission Date: 20141002
  Serious: Yes (Hospitalization)
  Sender: FDA-Public Use
  Company Number: NZ-ALLERGAN-1303613US

PATIENT
  Age: 50 Year
  Sex: Female

DRUGS (4)
  1. BOTOX [Suspect]
     Indication: DYSTONIA
     Dosage: 100 UNITS (50UNITS PER SIDE)
     Route: 030
     Dates: start: 20091221, end: 20091221
  2. BOTOX [Suspect]
     Dosage: 200 UNITS, SINGLE
     Dates: start: 2003, end: 2003
  3. DYSPORT [Suspect]
     Indication: PRODUCT USED FOR UNKNOWN INDICATION
     Dosage: 650 UNITS, SINGLE
     Dates: start: 20091219, end: 20091219
  4. DIAZEPAM [Concomitant]
     Dosage: 5 MG, UNK
     Route: 048

REACTIONS (3)
  - Dysphagia [Recovered/Resolved]
  - Off label use [Unknown]
  - Injection site reaction [Recovered/Resolved]
